FAERS Safety Report 16415532 (Version 2)
Quarter: 2019Q3

REPORT INFORMATION
  Report Type: Spontaneous
  Country: US (occurrence: US)
  Receive Date: 20190611
  Receipt Date: 20190708
  Transmission Date: 20191004
  Serious: Yes (Hospitalization)
  Sender: FDA-Public Use
  Company Number: US-SA-2019SA153614

PATIENT
  Age: 76 Year
  Sex: Female
  Weight: 72.5 kg

DRUGS (1)
  1. APIDRA [Suspect]
     Active Substance: INSULIN GLULISINE
     Dosage: UNK UNK, UNK
     Route: 065

REACTIONS (2)
  - Blood glucose increased [Unknown]
  - Wrong product administered [Unknown]
